FAERS Safety Report 7786377-8 (Version None)
Quarter: 2011Q3

REPORT INFORMATION
  Report Type: 
  Country: None (occurrence: None)
  Receive Date: 20110929
  Receipt Date: 20110927
  Transmission Date: 20111222
  Serious: Yes (Death, Hospitalization)
  Sender: FDA-Public Use
  Company Number: PHHY2011NO85500

PATIENT
  Sex: Male

DRUGS (2)
  1. CETIRIZINE HCL [Concomitant]
     Indication: HYPERSENSITIVITY
     Dosage: UNK UKN, UNK
  2. RITALIN [Suspect]
     Dosage: UNK UKN, UNK
     Dates: start: 20110909

REACTIONS (4)
  - HYPOGLYCAEMIA [None]
  - LOSS OF CONSCIOUSNESS [None]
  - COMA [None]
  - BRAIN DEATH [None]
